FAERS Safety Report 11668215 (Version 1)
Quarter: 2015Q4

REPORT INFORMATION
  Report Type: Spontaneous
  Country: US (occurrence: US)
  Receive Date: 20151027
  Receipt Date: 20151027
  Transmission Date: 20160304
  Serious: No
  Sender: FDA-Public Use
  Company Number: US-ELI_LILLY_AND_COMPANY-US201003004056

PATIENT
  Sex: Female

DRUGS (3)
  1. FORTEO [Suspect]
     Active Substance: TERIPARATIDE
     Dosage: UNK, UNKNOWN
  2. SOMA [Concomitant]
     Active Substance: CARISOPRODOL
     Dosage: UNK, OTHER
  3. TRAMADOL. [Concomitant]
     Active Substance: TRAMADOL
     Dosage: UNK, OTHER

REACTIONS (4)
  - Bone pain [Unknown]
  - Somnolence [Unknown]
  - Asthenia [Unknown]
  - Apathy [Unknown]
